FAERS Safety Report 5885103-7 (Version None)
Quarter: 2008Q3

REPORT INFORMATION
  Report Type: 
  Country: None (occurrence: None)
  Receive Date: 20080916
  Receipt Date: 20080911
  Transmission Date: 20090109
  Serious: Yes (Disabling)
  Sender: FDA-Public Use
  Company Number: DE-MERCK-0809DEU00034

PATIENT
  Age: 8 Year
  Sex: Male
  Weight: 30 kg

DRUGS (2)
  1. SINGULAIR [Suspect]
     Route: 048
     Dates: start: 20070801
  2. LEVOCETIRIZINE DIHYDROCHLORIDE [Concomitant]
     Route: 048
     Dates: start: 20060501

REACTIONS (1)
  - ENAMEL ANOMALY [None]
